FAERS Safety Report 6584755-6 (Version None)
Quarter: 2010Q1

REPORT INFORMATION
  Report Type: 
  Country: None (occurrence: None)
  Receive Date: 20100217
  Receipt Date: 20100210
  Transmission Date: 20100710
  Serious: Yes (Other)
  Sender: FDA-Public Use
  Company Number: PHEH2009US16445

PATIENT
  Sex: Male
  Weight: 42.7 kg

DRUGS (5)
  1. EXJADE [Suspect]
     Indication: IRON OVERLOAD
     Dosage: 1000 MG, QD
     Route: 048
     Dates: start: 20080916, end: 20091110
  2. EXJADE [Suspect]
     Indication: CHELATION THERAPY
  3. LEVOTHYROXINE SODIUM [Concomitant]
     Dosage: 137 MCG DAILY
     Route: 048
  4. SOMATROPIN [Concomitant]
     Dosage: 2 MG, QD
     Route: 058
  5. VIACTIV                                 /USA/ [Concomitant]
     Dosage: 2 TABLETS BID
     Route: 048

REACTIONS (5)
  - BLOOD TEST ABNORMAL [None]
  - H1N1 INFLUENZA [None]
  - NEUTROPENIA [None]
  - SERUM FERRITIN INCREASED [None]
  - THROMBOCYTOPENIA [None]
